FAERS Safety Report 15981148 (Version 2)
Quarter: 2019Q1

REPORT INFORMATION
  Report Type: Spontaneous
  Country: GR (occurrence: GR)
  Receive Date: 20190219
  Receipt Date: 20190318
  Transmission Date: 20190418
  Serious: Yes (Other)
  Sender: FDA-Public Use
  Company Number: GR-PFIZER INC-2019070467

PATIENT
  Age: 37 Year
  Sex: Male

DRUGS (9)
  1. CEFTRIAXONE. [Suspect]
     Active Substance: CEFTRIAXONE
     Indication: ANTIBIOTIC THERAPY
  2. PIPERACILLIN/TAZOBACTAM [Suspect]
     Active Substance: PIPERACILLIN SODIUM\TAZOBACTAM SODIUM
     Indication: ANTIBIOTIC THERAPY
     Dosage: 2.25 G, 3X/DAY (PER 8 HOURS)
     Route: 042
  3. LINEZOLID. [Suspect]
     Active Substance: LINEZOLID
     Indication: ANTIBIOTIC THERAPY
     Dosage: 600 MG, 2X/DAY (PER 12 HOURS)
     Route: 042
  4. RIFAMPICIN [Suspect]
     Active Substance: RIFAMPIN
     Indication: ANTIBIOTIC THERAPY
     Dosage: 600 MG, 1X/DAY(PER 24 H)
     Route: 042
  5. CLOXACILLIN [Suspect]
     Active Substance: CLOXACILLIN
     Indication: ANTIBIOTIC THERAPY
     Dosage: 500 MG PER 4 HOURS
     Route: 042
  6. CLOXACILLIN [Suspect]
     Active Substance: CLOXACILLIN
     Dosage: 2 G PER 4 HOURS
     Route: 042
  7. MICAFUNGIN. [Suspect]
     Active Substance: MICAFUNGIN SODIUM
     Indication: ANTIBIOTIC THERAPY
     Dosage: 50 MG, 1X/DAY (PER 24 HOURS)
     Route: 042
  8. DAPTOMYCIN. [Suspect]
     Active Substance: DAPTOMYCIN
     Indication: ANTIBIOTIC THERAPY
     Dosage: 500 MG PER 48 HOURS
     Route: 042
  9. VANCOMYCIN HCL [Suspect]
     Active Substance: VANCOMYCIN HYDROCHLORIDE
     Indication: STAPHYLOCOCCAL INFECTION

REACTIONS (8)
  - Oedema peripheral [Unknown]
  - Dyspnoea [Unknown]
  - Sleep disorder [Unknown]
  - Endocarditis bacterial [Unknown]
  - Condition aggravated [Unknown]
  - Restlessness [Unknown]
  - Oliguria [Unknown]
  - Oxygen saturation decreased [Unknown]
